FAERS Safety Report 17927423 (Version 2)
Quarter: 2020Q3

REPORT INFORMATION
  Report Type: Spontaneous
  Country: US (occurrence: US)
  Receive Date: 20200623
  Receipt Date: 20200922
  Transmission Date: 20201103
  Serious: No
  Sender: FDA-Public Use
  Company Number: US-GLOBAL BLOOD THERAPEUTICS INC-US-GBT-20-00860

PATIENT
  Sex: Male

DRUGS (2)
  1. OXBRYTA [Suspect]
     Active Substance: VOXELOTOR
     Indication: SICKLE CELL ANAEMIA WITH CRISIS
     Route: 048
     Dates: start: 20200403
  2. HYDROXYUREA. [Concomitant]
     Active Substance: HYDROXYUREA
     Indication: PRODUCT USED FOR UNKNOWN INDICATION
     Dates: start: 20200801

REACTIONS (7)
  - Fatigue [Unknown]
  - Product dose omission issue [Unknown]
  - Insomnia [Not Recovered/Not Resolved]
  - Limb mass [Unknown]
  - Eye pruritus [Recovered/Resolved]
  - Sickle cell anaemia with crisis [Unknown]
  - Rash [Recovered/Resolved]

NARRATIVE: CASE EVENT DATE: 2020
